FAERS Safety Report 15464055 (Version 2)
Quarter: 2018Q4

REPORT INFORMATION
  Report Type: Report from Study
  Country: US (occurrence: US)
  Receive Date: 20181004
  Receipt Date: 20181107
  Transmission Date: 20190204
  Serious: Yes (Hospitalization, Other)
  Sender: FDA-Public Use
  Company Number: US-JNJFOC-20181000712

PATIENT
  Sex: Male

DRUGS (13)
  1. CALCIUM [Concomitant]
     Active Substance: CALCIUM
  2. COQ10 [Concomitant]
     Active Substance: UBIDECARENONE
  3. FUROSEMIDE. [Concomitant]
     Active Substance: FUROSEMIDE
  4. PREVACID [Concomitant]
     Active Substance: LANSOPRAZOLE
  5. IMBRUVICA [Suspect]
     Active Substance: IBRUTINIB
     Indication: CHRONIC LYMPHOCYTIC LEUKAEMIA
     Route: 048
     Dates: start: 20180509
  6. ASPIRIN. [Concomitant]
     Active Substance: ASPIRIN
  7. FENOFIBRATE. [Concomitant]
     Active Substance: FENOFIBRATE
  8. MAGNESIUM [Concomitant]
     Active Substance: MAGNESIUM
  9. FISH OIL W/TOCOPHEROL [Concomitant]
  10. METOPROLOL SUCCINATE. [Concomitant]
     Active Substance: METOPROLOL SUCCINATE
  11. VITAMIN D [Concomitant]
     Active Substance: CHOLECALCIFEROL
  12. CILOSTAZOL. [Concomitant]
     Active Substance: CILOSTAZOL
  13. KLOR-CON [Concomitant]
     Active Substance: POTASSIUM CHLORIDE

REACTIONS (3)
  - Cholelithiasis [Recovering/Resolving]
  - Lyme disease [Unknown]
  - Cholecystitis infective [Recovering/Resolving]
